FAERS Safety Report 9769590 (Version 1)
Quarter: 2013Q4

REPORT INFORMATION
  Report Type: Spontaneous
  Country: US (occurrence: None)
  Receive Date: 20131217
  Receipt Date: 20131217
  Transmission Date: 20140711
  Serious: No
  Sender: FDA-Public Use
  Company Number: None

PATIENT
  Age: 85 Year
  Sex: Female
  Weight: 58.97 kg

DRUGS (9)
  1. EYELEA 2MG/0.05ML SDV [Suspect]
     Indication: AGE-RELATED MACULAR DEGENERATION
     Dosage: 2MG/0.055ML
     Route: 047
     Dates: start: 20131212, end: 20131212
  2. AMLODIPINE [Concomitant]
  3. TEMAZEPAM [Concomitant]
  4. CALCIUM+D [Concomitant]
  5. OCUVITE [Concomitant]
  6. LINSINOPRIL 40MG MERCK [Concomitant]
  7. HYDROCHLOROTHYAZIDE [Concomitant]
  8. ATENOLOL [Concomitant]
  9. LOVASTATIN [Concomitant]

REACTIONS (1)
  - Anterior chamber inflammation [None]
